FAERS Safety Report 10381766 (Version 1)
Quarter: 2014Q3

REPORT INFORMATION
  Report Type: Spontaneous
  Country: MX (occurrence: MX)
  Receive Date: 20140813
  Receipt Date: 20140813
  Transmission Date: 20150326
  Serious: Yes (Other)
  Sender: FDA-Public Use
  Company Number: MX-BAYER-2014-117967

PATIENT
  Age: 2 Year
  Sex: Male

DRUGS (1)
  1. KOGENATE FS [Suspect]
     Active Substance: ANTIHEMOPHILIC FACTOR, HUMAN RECOMBINANT
     Indication: PROPHYLAXIS
     Dosage: 25 IU/KG, TIW

REACTIONS (2)
  - Haemorrhage [Unknown]
  - Anti factor VIII antibody positive [Recovering/Resolving]

NARRATIVE: CASE EVENT DATE: 201402
